FAERS Safety Report 13552166 (Version 1)
Quarter: 2017Q2

REPORT INFORMATION
  Report Type: Spontaneous
  Country: SE (occurrence: SE)
  Receive Date: 20170516
  Receipt Date: 20170516
  Transmission Date: 20170830
  Serious: Yes (Hospitalization)
  Sender: FDA-Public Use
  Company Number: PHHY2017SE065761

PATIENT
  Age: 67 Year
  Sex: Female

DRUGS (2)
  1. AMOXICILLIN SANDOZ [Suspect]
     Active Substance: AMOXICILLIN
     Indication: PNEUMONIA
     Route: 065
     Dates: end: 20170418
  2. AMOXICILLIN SANDOZ [Suspect]
     Active Substance: AMOXICILLIN
     Route: 042

REACTIONS (4)
  - Asthenia [Unknown]
  - Nausea [Unknown]
  - Pallor [Unknown]
  - Haemoglobin decreased [Unknown]

NARRATIVE: CASE EVENT DATE: 201704
